FAERS Safety Report 5496604-8 (Version None)
Quarter: 2007Q4

REPORT INFORMATION
  Report Type: 
  Country: None (occurrence: None)
  Receive Date: 20071025
  Receipt Date: 20070625
  Transmission Date: 20080405
  Serious: No
  Sender: FDA-Public Use
  Company Number: A0659960A

PATIENT
  Age: 68 Year
  Sex: Female

DRUGS (7)
  1. ADVAIR DISKUS 100/50 [Suspect]
     Indication: ASTHMA
     Route: 055
     Dates: start: 20020101
  2. SEREVENT [Suspect]
     Indication: ASTHMA
     Dosage: 50MCG TWICE PER DAY
     Route: 055
     Dates: start: 20040101
  3. ZYRTEC [Concomitant]
  4. MOBIC [Concomitant]
  5. LESCOL [Concomitant]
  6. ACIPHEX [Concomitant]
  7. LORCET [Concomitant]

REACTIONS (1)
  - MOUTH ULCERATION [None]
